FAERS Safety Report 6391339-1 (Version None)
Quarter: 2009Q4

REPORT INFORMATION
  Report Type: 
  Country: None (occurrence: None)
  Receive Date: 20091007
  Receipt Date: 20090928
  Transmission Date: 20100525
  Serious: Yes (Other)
  Sender: FDA-Public Use
  Company Number: AU-ASTRAZENECA-2009SE16038

PATIENT
  Age: 55 Year
  Sex: Male

DRUGS (7)
  1. CRESTOR [Suspect]
     Route: 048
  2. ATACAND [Concomitant]
  3. SEROQUEL [Concomitant]
  4. ALCOHOL [Concomitant]
  5. ASTRIX 100 [Concomitant]
  6. LEXAPRO [Concomitant]
  7. NORVASC [Concomitant]

REACTIONS (5)
  - CHEST DISCOMFORT [None]
  - MALAISE [None]
  - MYOPATHY [None]
  - RENAL FAILURE [None]
  - VOMITING [None]
